FAERS Safety Report 9703015 (Version 2)
Quarter: 2014Q1

REPORT INFORMATION
  Report Type: Report from Study
  Country: US (occurrence: US)
  Receive Date: 20131122
  Receipt Date: 20140124
  Transmission Date: 20141002
  Serious: Yes (Death)
  Sender: FDA-Public Use
  Company Number: US-ROCHE-1307178

PATIENT
  Age: 52 Year
  Sex: Female
  Weight: 64.92 kg

DRUGS (7)
  1. AVASTIN [Suspect]
     Indication: BREAST CANCER
     Route: 065
     Dates: start: 20111007
  2. ABRAXANE [Concomitant]
     Route: 065
     Dates: start: 20111007
  3. ABRAXANE [Concomitant]
     Route: 065
     Dates: start: 20111026
  4. TYLENOL [Concomitant]
     Route: 065
  5. BENADRYL (UNITED STATES) [Concomitant]
     Route: 065
  6. NEUPOGEN [Concomitant]
     Route: 065
  7. ZOFRAN [Concomitant]
     Route: 065

REACTIONS (4)
  - Death [Fatal]
  - Cough [Unknown]
  - Hyperkalaemia [Unknown]
  - Hyponatraemia [Unknown]
